FAERS Safety Report 9278734 (Version 1)
Quarter: 2013Q2

REPORT INFORMATION
  Report Type: Spontaneous
  Country: AU (occurrence: None)
  Receive Date: 20130501
  Receipt Date: 20130501
  Transmission Date: 20140414
  Serious: Yes (Hospitalization)
  Sender: FDA-Public Use
  Company Number: 2012-004563

PATIENT
  Age: 51 Year
  Sex: 0
  Weight: 70 kg

DRUGS (8)
  1. ERYTHROMYCIN [Suspect]
     Route: 048
     Dates: start: 20120828
  2. ATACAND [Suspect]
  3. EUTROXSIG (LEVOTHYROXINE SODIUM) [Concomitant]
  4. RHINOCORT/ 00614601/ (BUDESONIDE) [Concomitant]
  5. AVANZA (MIRTAZEPINE) [Suspect]
  6. DESVENLAFAXINE [Suspect]
  7. LITHIUM CARBONATE [Suspect]
  8. SOLONE (PREDNISOLONE) [Concomitant]

REACTIONS (5)
  - Renal failure acute [None]
  - Hypokalaemia [None]
  - Toxicity to various agents [None]
  - Drug interaction [None]
  - Nephropathy toxic [None]
